FAERS Safety Report 6810466-5 (Version None)
Quarter: 2010Q2

REPORT INFORMATION
  Report Type: 
  Country: None (occurrence: None)
  Receive Date: 20100630
  Receipt Date: 20100623
  Transmission Date: 20101027
  Serious: Yes (Other)
  Sender: FDA-Public Use
  Company Number: IT-JNJFOC-20100607404

PATIENT
  Age: 46 Year
  Sex: Female

DRUGS (2)
  1. INVEGA [Suspect]
     Indication: SELF INJURIOUS BEHAVIOUR
     Route: 048
  2. XANAX [Suspect]
     Indication: SELF INJURIOUS BEHAVIOUR
     Route: 048

REACTIONS (4)
  - MULTIPLE DRUG OVERDOSE INTENTIONAL [None]
  - SELF INJURIOUS BEHAVIOUR [None]
  - SLUGGISHNESS [None]
  - SOPOR [None]
